FAERS Safety Report 7016525-9 (Version None)
Quarter: 2010Q3

REPORT INFORMATION
  Report Type: 
  Country: None (occurrence: None)
  Receive Date: 20100927
  Receipt Date: 20100922
  Transmission Date: 20110219
  Serious: Yes (Hospitalization)
  Sender: FDA-Public Use
  Company Number: A0836651A

PATIENT
  Age: 67 Year
  Sex: Female

DRUGS (6)
  1. AVANDIA [Suspect]
     Dosage: 8MG PER DAY
     Route: 048
     Dates: end: 20090201
  2. BENICAR [Concomitant]
  3. FEMARA [Concomitant]
  4. HYDROCHLOROTHIAZIDE [Concomitant]
  5. JANUVIA [Concomitant]
  6. CADUET [Concomitant]

REACTIONS (3)
  - ARRHYTHMIA [None]
  - HEART RATE IRREGULAR [None]
  - SUPRAVENTRICULAR TACHYCARDIA [None]
